FAERS Safety Report 9994366 (Version 1)
Quarter: 2014Q1

REPORT INFORMATION
  Report Type: Spontaneous
  Country: FR (occurrence: FR)
  Receive Date: 20140311
  Receipt Date: 20140311
  Transmission Date: 20141002
  Serious: Yes (Death)
  Sender: FDA-Public Use
  Company Number: FR-ASTRAZENECA-2014SE16780

PATIENT
  Sex: 0

DRUGS (3)
  1. XEROQUEL [Suspect]
     Indication: BIPOLAR DISORDER
     Route: 064
     Dates: end: 201311
  2. EFFEXOR [Suspect]
     Indication: ANXIETY
     Route: 064
     Dates: end: 201311
  3. LEVOTHYROX [Suspect]
     Route: 064

REACTIONS (1)
  - Foetal heart rate abnormal [Fatal]
